FAERS Safety Report 11097000 (Version 2)
Quarter: 2015Q2

REPORT INFORMATION
  Report Type: Spontaneous
  Country: US (occurrence: US)
  Receive Date: 20150507
  Receipt Date: 20150522
  Transmission Date: 20150821
  Serious: Yes (Death, Other)
  Sender: FDA-Public Use
  Company Number: US-BAYER-2015-182420

PATIENT
  Age: 52 Year
  Sex: Male

DRUGS (1)
  1. GADAVIST [Suspect]
     Active Substance: GADOBUTROL
     Indication: NUCLEAR MAGNETIC RESONANCE IMAGING BRAIN
     Dosage: 10 ML, ONCE
     Dates: start: 20150428, end: 20150428

REACTIONS (6)
  - Retching [None]
  - Nausea [None]
  - Pulmonary oedema [None]
  - Vertigo [None]
  - Hyperhidrosis [None]
  - Cardiac arrest [Fatal]

NARRATIVE: CASE EVENT DATE: 20150428
